FAERS Safety Report 16831273 (Version 1)
Quarter: 2019Q3

REPORT INFORMATION
  Report Type: Report from Study
  Country: CA (occurrence: CA)
  Receive Date: 20190920
  Receipt Date: 20190920
  Transmission Date: 20191005
  Serious: Yes (Hospitalization, Other)
  Sender: FDA-Public Use
  Company Number: CA-BRISTOL-MYERS SQUIBB COMPANY-BMS-2019-042867

PATIENT
  Age: 87 Year
  Sex: Female

DRUGS (1)
  1. ABATACEPT [Suspect]
     Active Substance: ABATACEPT
     Indication: RHEUMATOID ARTHRITIS
     Dosage: 125 MILLIGRAM, QWK
     Route: 058
     Dates: start: 20190111

REACTIONS (10)
  - Diarrhoea [Unknown]
  - Localised infection [Unknown]
  - Lung infection [Unknown]
  - Mass [Unknown]
  - Weight increased [Recovering/Resolving]
  - Pain [Unknown]
  - Pain in extremity [Recovering/Resolving]
  - Aphasia [Unknown]
  - Gait disturbance [Unknown]
  - Adverse event [Recovering/Resolving]

NARRATIVE: CASE EVENT DATE: 20190830
